FAERS Safety Report 10413655 (Version 1)
Quarter: 2014Q2

REPORT INFORMATION
  Report Type: Spontaneous
  Country: US (occurrence: None)
  Receive Date: 20140604
  Receipt Date: 20140604
  Transmission Date: 20141212
  Serious: Yes (Hospitalization)
  Sender: FDA-Public Use
  Company Number: 20120928CINRY3436

PATIENT
  Age: 36 Year
  Sex: Female

DRUGS (5)
  1. CINRYZE [Suspect]
     Indication: PROPHYLAXIS
     Dosage: 1 IN 3D
     Dates: start: 201205
  2. CINRYZE [Suspect]
     Indication: HEREDITARY ANGIOEDEMA
     Dosage: 1 IN 3D
     Dates: start: 201205
  3. XANAX (ALPRAZOLAM) [Concomitant]
  4. MAGNESIUM (MAGNESIUM) [Concomitant]
  5. POTASSIUM (POTASSIUM) [Concomitant]

REACTIONS (1)
  - Hereditary angioedema [None]
